FAERS Safety Report 8215366-4 (Version None)
Quarter: 2012Q1

REPORT INFORMATION
  Report Type: 
  Country: None (occurrence: None)
  Receive Date: 20120316
  Receipt Date: 20120313
  Transmission Date: 20120608
  Serious: Yes (Other)
  Sender: FDA-Public Use
  Company Number: US-PFIZER INC-2012026777

PATIENT
  Sex: Male
  Weight: 81.633 kg

DRUGS (11)
  1. DEPAKOTE [Concomitant]
     Dosage: UNK
  2. NOVOLIN R [Concomitant]
     Indication: DIABETES MELLITUS
     Dosage: UNK
  3. ACETYLSALICYLIC ACID [Concomitant]
     Dosage: UNK
  4. SIMVASTATIN [Concomitant]
     Dosage: UNK
  5. LYRICA [Suspect]
     Indication: DIABETIC NEUROPATHY
  6. LYRICA [Suspect]
     Indication: NERVE INJURY
     Dosage: 75 MG, 2X/DAY
     Route: 048
     Dates: start: 20110101
  7. CARVEDILOL [Concomitant]
     Dosage: 6.25 MG, 2X/DAY
  8. EFFEXOR XR [Concomitant]
     Indication: DEPRESSION
     Dosage: UNK
  9. LISINOPRIL [Concomitant]
     Indication: HYPERTENSION
     Dosage: UNK
  10. NITROSTAT [Concomitant]
     Indication: CARDIAC DISORDER
     Dosage: 0.4 MG, UNK
  11. LANTUS [Concomitant]
     Indication: DIABETES MELLITUS
     Dosage: UNK

REACTIONS (3)
  - ANXIETY [None]
  - CARDIAC DISORDER [None]
  - MYOCARDIAL INFARCTION [None]
